FAERS Safety Report 6653149-7 (Version None)
Quarter: 2010Q1

REPORT INFORMATION
  Report Type: 
  Country: None (occurrence: None)
  Receive Date: 20100317
  Receipt Date: 20100126
  Transmission Date: 20100710
  Serious: Yes (Hospitalization)
  Sender: FDA-Public Use
  Company Number: DSA_42485_2010

PATIENT

DRUGS (7)
  1. XENAZINE [Suspect]
     Indication: ESSENTIAL TREMOR
     Dosage: 12.5 MG 1X ORAL
     Route: 048
     Dates: start: 20100125, end: 20100125
  2. LISINOPRIL [Concomitant]
  3. METOPROLOL TARTRATE [Concomitant]
  4. MIRALAX [Concomitant]
  5. POTASSIUM CHLORIDE [Concomitant]
  6. PRILOSEC [Concomitant]
  7. ZOCOR [Concomitant]

REACTIONS (1)
  - DYSPNOEA [None]
